FAERS Safety Report 8152137-1 (Version None)
Quarter: 2012Q1

REPORT INFORMATION
  Report Type: 
  Country: None (occurrence: None)
  Receive Date: 20120215
  Receipt Date: 20120215
  Transmission Date: 20120608
  Serious: Yes (Life-Threatening, Other)
  Sender: FDA-Public Use
  Company Number: None

PATIENT
  Age: 58 Year
  Sex: Male
  Weight: 99.9 kg

DRUGS (1)
  1. PROTAMINE SULFATE [Suspect]
     Indication: SURGERY
     Dosage: ONCE IV
     Route: 042
     Dates: start: 20111029

REACTIONS (4)
  - HYPOTENSION [None]
  - BRONCHOSPASM [None]
  - ANAPHYLACTOID REACTION [None]
  - ANAPHYLACTIC REACTION [None]
